FAERS Safety Report 25951923 (Version 1)
Quarter: 2025Q4

REPORT INFORMATION
  Report Type: Spontaneous
  Country: CN (occurrence: CN)
  Receive Date: 20251023
  Receipt Date: 20251023
  Transmission Date: 20260117
  Serious: Yes (Hospitalization)
  Sender: STRIDES
  Company Number: CN-STRIDES ARCOLAB LIMITED-2025SP013205

PATIENT
  Age: 31 Year
  Sex: Male

DRUGS (12)
  1. PREDNISOLONE [Suspect]
     Active Substance: PREDNISOLONE
     Indication: Immunosuppressant drug therapy
     Dosage: UNK, TABLETS
     Route: 065
  2. TACROLIMUS [Suspect]
     Active Substance: TACROLIMUS
     Indication: Immunosuppressant drug therapy
     Dosage: UNK, CAPSULES
     Route: 065
     Dates: start: 202304
  3. MESCALINE [Suspect]
     Active Substance: MESCALINE
     Indication: Immunosuppressant drug therapy
     Dosage: UNK, RECEIVED ENTERIC-COATED TABLETS
     Route: 065
     Dates: start: 202304
  4. TOLVAPTAN [Concomitant]
     Active Substance: TOLVAPTAN
     Indication: Sodium retention
     Dosage: UNK
     Route: 065
  5. TOLVAPTAN [Concomitant]
     Active Substance: TOLVAPTAN
     Indication: Polyuria
  6. IVABRADINE [Concomitant]
     Active Substance: IVABRADINE
     Indication: Cardiac dysfunction
     Dosage: UNK
     Route: 065
  7. DAPAGLIFLOZIN [Concomitant]
     Active Substance: DAPAGLIFLOZIN
     Indication: Cardiac dysfunction
     Dosage: UNK
     Route: 065
  8. FERROUS SUCCINATE [Concomitant]
     Active Substance: FERROUS SUCCINATE
     Indication: Anaemia
     Dosage: UNK
     Route: 065
  9. METOPROLOL [Concomitant]
     Active Substance: METOPROLOL
     Indication: Ventricular tachycardia
     Dosage: RECEIVED DELAYED-RELEASE TABLETS
     Route: 065
  10. ROSUVASTATIN CALCIUM [Concomitant]
     Active Substance: ROSUVASTATIN CALCIUM
     Indication: Hyperlipidaemia
     Dosage: UNK
     Route: 065
  11. SODIUM BICARBONATE [Concomitant]
     Active Substance: SODIUM BICARBONATE
     Indication: Acid base balance abnormal
     Dosage: UNK, RECEIVED INFUSION AT 125 TO 145 ML/H
     Route: 042
  12. HEPARIN CALCIUM [Concomitant]
     Active Substance: HEPARIN CALCIUM
     Indication: Anticoagulant therapy
     Dosage: UNK
     Route: 065

REACTIONS (2)
  - Nausea [Recovering/Resolving]
  - Off label use [Unknown]

NARRATIVE: CASE EVENT DATE: 20230101
